FAERS Safety Report 8735908 (Version 2)
Quarter: 2012Q4

REPORT INFORMATION
  Report Type: 
  Country: US (occurrence: US)
  Receive Date: 20120822
  Receipt Date: 20120906
  Transmission Date: 20130627
  Serious: Yes (Other)
  Sender: FDA-Public Use
  Company Number: US-PFIZER INC-2012202345

PATIENT
  Age: 65 Year
  Sex: Male
  Weight: 88 kg

DRUGS (4)
  1. LIPITOR [Suspect]
     Indication: BLOOD CHOLESTEROL INCREASED
     Dosage: 10 mg, 1x/day
  2. LIPITOR [Suspect]
     Dosage: 20 mg, 1x/day
  3. LIPITOR [Suspect]
     Dosage: 40 mg, 1x/day
  4. LIPITOR [Suspect]
     Dosage: 80 mg, 1x/day

REACTIONS (3)
  - Myocardial infarction [Unknown]
  - Myocardial infarction [Unknown]
  - Low density lipoprotein increased [Unknown]
